FAERS Safety Report 7942167-4 (Version None)
Quarter: 2011Q4

REPORT INFORMATION
  Report Type: 
  Country: None (occurrence: None)
  Receive Date: 20111123
  Receipt Date: 20111123
  Transmission Date: 20120403
  Serious: Yes (Hospitalization)
  Sender: FDA-Public Use
  Company Number: None

PATIENT
  Sex: Male
  Weight: 79.3795 kg

DRUGS (1)
  1. GILENYA [Suspect]
     Dosage: 10MG DAILY PO
     Route: 048
     Dates: start: 20110401

REACTIONS (2)
  - BLOOD PRESSURE INCREASED [None]
  - PRESYNCOPE [None]
